FAERS Safety Report 5008325-6 (Version None)
Quarter: 2006Q2

REPORT INFORMATION
  Report Type: 
  Country: None (occurrence: None)
  Receive Date: 20060523
  Receipt Date: 20060515
  Transmission Date: 20061013
  Serious: Yes (Other)
  Sender: FDA-Public Use
  Company Number: CA-BRISTOL-MYERS SQUIBB COMPANY-13377692

PATIENT
  Age: 89 Year
  Sex: Female

DRUGS (7)
  1. GATIFLOXACIN [Suspect]
     Indication: PNEUMONIA
     Dosage: INITIAL DOSE 400 MG EVERY OTHER DAY STOPPED RESTARTED AT 400 MG DAILY
     Route: 048
  2. GATIFLOXACIN [Suspect]
     Indication: SEPSIS
     Dosage: INITIAL DOSE 400 MG EVERY OTHER DAY STOPPED RESTARTED AT 400 MG DAILY
     Route: 048
  3. GATIFLOXACIN [Suspect]
     Indication: SEPSIS
     Route: 042
  4. NIFEDIPINE [Concomitant]
  5. ACETYLSALICYLIC ACID SRT [Concomitant]
  6. LATANOPROST [Concomitant]
     Route: 047
  7. DONEPEZIL HCL [Concomitant]

REACTIONS (5)
  - AGITATION [None]
  - DELIRIUM [None]
  - DELUSION [None]
  - HALLUCINATION [None]
  - PARANOIA [None]
